FAERS Safety Report 5289772-4 (Version None)
Quarter: 2007Q2

REPORT INFORMATION
  Report Type: 
  Country: None (occurrence: None)
  Receive Date: 20070406
  Receipt Date: 20070328
  Transmission Date: 20071010
  Serious: Yes (Other)
  Sender: FDA-Public Use
  Company Number: NL-ABBOTT-07P-114-0355148-00

PATIENT
  Sex: Female
  Weight: 60 kg

DRUGS (3)
  1. KLACID SR MGA [Suspect]
     Indication: COUGH
     Route: 048
     Dates: start: 20061023, end: 20061029
  2. MICROCOGYNON 30 DRAGEE [Interacting]
     Indication: CONTRACEPTION
     Dosage: 1TIME PER 1 CYCLICAL 1 DF
     Dates: start: 20041019, end: 20061104
  3. PANTAPROZOL [Concomitant]
     Indication: DRUG USE FOR UNKNOWN INDICATION
     Dosage: 1 TIME DF
     Route: 048
     Dates: start: 20041019, end: 20061104

REACTIONS (1)
  - DRUG INTERACTION [None]
